FAERS Safety Report 9909751 (Version 1)
Quarter: 2014Q1

REPORT INFORMATION
  Report Type: Spontaneous
  Country: US (occurrence: None)
  Receive Date: 20140212
  Receipt Date: 20140212
  Transmission Date: 20141002
  Serious: Yes (Other)
  Sender: FDA-Public Use
  Company Number: 2014-US-000944

PATIENT
  Age: 56 Year
  Sex: Female
  Weight: 59 kg

DRUGS (3)
  1. XYREM (SODIUM OXYBATE) ORAL SOLUTION, 500MG/ML [Suspect]
     Indication: SLEEP ATTACKS
     Dosage: (18-JAN-2004)1.5 GMS BID ORAL.
  2. NORVASC (AMLODIPINE BESILATE) [Concomitant]
  3. DIOVAN (VALSARTAN) [Concomitant]

REACTIONS (4)
  - Anticholinergic syndrome [None]
  - Cognitive disorder [None]
  - Blood pressure increased [None]
  - Feeling abnormal [None]
